FAERS Safety Report 10609902 (Version 1)
Quarter: 2014Q4

REPORT INFORMATION
  Report Type: Spontaneous
  Country: FI (occurrence: FI)
  Receive Date: 20141126
  Receipt Date: 20141126
  Transmission Date: 20150529
  Serious: Yes (Other)
  Sender: FDA-Public Use
  Company Number: FI-JNJFOC-20141112227

PATIENT
  Sex: Female

DRUGS (6)
  1. NITRO [Concomitant]
     Active Substance: NITROGLYCERIN
     Route: 042
  2. DIAZEPAM. [Concomitant]
     Active Substance: DIAZEPAM
     Route: 065
  3. SERENASE [Suspect]
     Active Substance: HALOPERIDOL
     Indication: CONFUSIONAL STATE
     Route: 042
  4. SIMVASTATIN. [Concomitant]
     Active Substance: SIMVASTATIN
     Route: 065
  5. BISOPROLOL [Concomitant]
     Active Substance: BISOPROLOL
     Route: 065
  6. KLEXANE [Concomitant]
     Active Substance: ENOXAPARIN
     Route: 065

REACTIONS (5)
  - Seizure [Recovered/Resolved]
  - Incorrect route of drug administration [Unknown]
  - Tachycardia [Recovered/Resolved]
  - Hypertension [Recovered/Resolved]
  - Obstructive airways disorder [Recovered/Resolved]
